FAERS Safety Report 10167452 (Version 2)
Quarter: 2014Q3

REPORT INFORMATION
  Report Type: Spontaneous
  Country: IT (occurrence: IT)
  Receive Date: 20140512
  Receipt Date: 20140707
  Transmission Date: 20150326
  Serious: Yes (Hospitalization)
  Sender: FDA-Public Use
  Company Number: IT-ACTAVIS-2014-09451

PATIENT
  Age: 25 Year
  Sex: Female

DRUGS (4)
  1. FLUVOXAMINE (UNKNOWN) [Suspect]
     Active Substance: FLUVOXAMINE
     Indication: INTENTIONAL SELF-INJURY
     Dosage: 1 DF, TOTAL
     Route: 048
     Dates: start: 20140410, end: 20140410
  2. XANAX [Suspect]
     Active Substance: ALPRAZOLAM
     Indication: INTENTIONAL SELF-INJURY
     Dosage: 1 DF, TOTAL
     Route: 048
     Dates: start: 20140410, end: 20140410
  3. TAVOR [Suspect]
     Active Substance: LORAZEPAM
     Indication: INTENTIONAL SELF-INJURY
     Dosage: 1 DF, TOTAL
     Route: 048
     Dates: start: 20140410, end: 20140410
  4. ORLISTAT (UNKNOWN) [Suspect]
     Active Substance: ORLISTAT
     Indication: INTENTIONAL SELF-INJURY
     Dosage: 1 DF, TOTAL
     Route: 048
     Dates: start: 20140410, end: 20140410

REACTIONS (3)
  - Sopor [Recovered/Resolved]
  - Drug abuse [Recovered/Resolved]
  - Hypokalaemia [Recovered/Resolved]

NARRATIVE: CASE EVENT DATE: 20140410
